FAERS Safety Report 5072773-9 (Version None)
Quarter: 2006Q3

REPORT INFORMATION
  Report Type: 
  Country: None (occurrence: None)
  Receive Date: 20060807
  Receipt Date: 20060802
  Transmission Date: 20061208
  Serious: Yes (Death, Hospitalization)
  Sender: FDA-Public Use
  Company Number: US-BRISTOL-MYERS SQUIBB COMPANY-13464219

PATIENT
  Age: 57 Year
  Sex: Female
  Weight: 53 kg

DRUGS (3)
  1. ERBITUX [Suspect]
     Indication: PANCREATIC CARCINOMA
     Dates: start: 20060706, end: 20060706
  2. CYCLOPHOSPHAMIDE [Suspect]
     Indication: PANCREATIC CARCINOMA
     Dates: start: 20060628, end: 20060628
  3. VACCINE [Suspect]
     Indication: PANCREATIC CARCINOMA
     Dates: start: 20060629, end: 20060629

REACTIONS (7)
  - BACK PAIN [None]
  - CHEST PAIN [None]
  - DEATH [None]
  - MALIGNANT NEOPLASM PROGRESSION [None]
  - NAUSEA [None]
  - TACHYCARDIA [None]
  - VOMITING [None]
